FAERS Safety Report 7864687-3 (Version None)
Quarter: 2011Q4

REPORT INFORMATION
  Report Type: 
  Country: None (occurrence: None)
  Receive Date: 20111028
  Receipt Date: 20111025
  Transmission Date: 20120403
  Serious: Yes (Other)
  Sender: FDA-Public Use
  Company Number: DE-PFIZER INC-2011226733

PATIENT
  Age: 58 Year
  Sex: Female
  Weight: 77 kg

DRUGS (2)
  1. VARENICLINE TARTRATE [Suspect]
     Indication: SMOKING CESSATION THERAPY
     Dosage: 0.5 MG, 2X/DAY
     Route: 048
     Dates: start: 20110808, end: 20110101
  2. RAMIPRIL [Concomitant]
     Dosage: 10 UNK, 1X1

REACTIONS (5)
  - AGORAPHOBIA [None]
  - DEPRESSION [None]
  - MOOD ALTERED [None]
  - DYSPNOEA [None]
  - RESTLESSNESS [None]
